FAERS Safety Report 9483250 (Version 1)
Quarter: 2013Q3

REPORT INFORMATION
  Report Type: Spontaneous
  Country: US (occurrence: US)
  Receive Date: 20130828
  Receipt Date: 20130828
  Transmission Date: 20140515
  Serious: Yes (Death)
  Sender: FDA-Public Use
  Company Number: US-AMGEN-KDL245329

PATIENT
  Age: 72 Year
  Sex: Female

DRUGS (11)
  1. PROCRIT [Suspect]
     Indication: ANAEMIA
     Dosage: UNK UNK, UNK
     Route: 065
     Dates: end: 20070605
  2. CLOPIDOGREL BISULFATE [Concomitant]
     Dosage: UNK UNK, UNK
     Route: 065
  3. TIOTROPIUM BROMIDE [Concomitant]
     Dosage: UNK UNK, UNK
     Route: 065
  4. DESLORATADINE [Concomitant]
     Dosage: UNK UNK, UNK
     Route: 065
  5. MONTELUKAST [Concomitant]
     Dosage: UNK UNK, UNK
     Route: 065
  6. PANTOPRAZOLE SODIUM [Concomitant]
     Dosage: UNK UNK, UNK
     Route: 065
  7. ISOSORBIDE MONONITRATE [Concomitant]
     Dosage: UNK UNK, UNK
     Route: 065
  8. FLUTICASONE/SALMETEROL [Concomitant]
     Dosage: UNK UNK, UNK
     Route: 065
  9. PROBENECID [Concomitant]
     Dosage: UNK UNK, UNK
     Route: 065
  10. METOPROLOL TARTRATE [Concomitant]
     Dosage: UNK UNK, UNK
     Route: 065
  11. ACETYLSALICYLIC ACID [Concomitant]
     Dosage: UNK UNK, UNK
     Route: 065

REACTIONS (1)
  - Death [Fatal]
